FAERS Safety Report 11650742 (Version 1)
Quarter: 2015Q4

REPORT INFORMATION
  Report Type: Spontaneous
  Country: US (occurrence: US)
  Receive Date: 20151021
  Receipt Date: 20151021
  Transmission Date: 20160304
  Serious: Yes (Other)
  Sender: FDA-Public Use
  Company Number: US-MYLANLABS-2014S1016257

PATIENT

DRUGS (1)
  1. EPIPEN JR [Suspect]
     Active Substance: EPINEPHRINE
     Indication: ANAPHYLACTIC REACTION
     Dosage: UNK
     Dates: start: 2014, end: 2014

REACTIONS (5)
  - Device failure [Recovered/Resolved]
  - Post-traumatic stress disorder [Not Recovered/Not Resolved]
  - Eating disorder [Not Recovered/Not Resolved]
  - Injection site scar [Not Recovered/Not Resolved]
  - Injection site laceration [Recovered/Resolved]

NARRATIVE: CASE EVENT DATE: 2014
